FAERS Safety Report 23924060 (Version 1)
Quarter: 2024Q2

REPORT INFORMATION
  Report Type: Spontaneous
  Country: FR (occurrence: FR)
  Receive Date: 20240531
  Receipt Date: 20240531
  Transmission Date: 20240716
  Serious: Yes (Death, Other)
  Sender: FDA-Public Use
  Company Number: None

PATIENT

DRUGS (9)
  1. VALACYCLOVIR HYDROCHLORIDE [Suspect]
     Active Substance: VALACYCLOVIR HYDROCHLORIDE
     Indication: Infection prophylaxis
     Dosage: 500 MG, BID (500 MG 1-0-1)
     Route: 048
     Dates: start: 2023, end: 20240503
  2. CYTARABINE [Suspect]
     Active Substance: CYTARABINE
     Indication: Bone marrow conditioning regimen
     Dosage: 1000 MG/M2, QD (1000 MG/M?, OR 1730 MG)
     Route: 042
     Dates: start: 20240427, end: 20240501
  3. METOCLOPRAMIDE [Suspect]
     Active Substance: METOCLOPRAMIDE
     Indication: Nausea
     Dosage: 10 MG (10 MG ON DEMAND)
     Route: 042
     Dates: start: 20240426, end: 20240504
  4. METOCLOPRAMIDE [Suspect]
     Active Substance: METOCLOPRAMIDE
     Indication: Vomiting
  5. POSACONAZOLE [Suspect]
     Active Substance: POSACONAZOLE
     Indication: Infection prophylaxis
     Dosage: 300 MG, QD (300 MG/DAY)
     Route: 048
     Dates: start: 2023, end: 20240506
  6. CLOFARABINE [Suspect]
     Active Substance: CLOFARABINE
     Indication: Bone marrow conditioning regimen
     Dosage: 30 MG/M2, QD (30 MG/M?, OR 52 MG)
     Route: 042
     Dates: start: 20240427, end: 20240501
  7. CHLORPROMAZINE [Suspect]
     Active Substance: CHLORPROMAZINE
     Indication: Nausea
     Dosage: 12.5 MG, QD (12.5 MG CONTINUOUSLY/DAY)
     Route: 042
     Dates: start: 20240430, end: 20240504
  8. CHLORPROMAZINE [Suspect]
     Active Substance: CHLORPROMAZINE
     Indication: Vomiting
  9. PIPERACILLIN AND TAZOBACTAM [Suspect]
     Active Substance: PIPERACILLIN SODIUM\TAZOBACTAM SODIUM
     Indication: Pyrexia
     Dosage: 1 DF, QID (4G/0.5G EVERY 6 HOURS)
     Route: 042
     Dates: start: 20240428, end: 20240504

REACTIONS (1)
  - Encephalopathy [Fatal]

NARRATIVE: CASE EVENT DATE: 20240504
